FAERS Safety Report 20881136 (Version 6)
Quarter: 2022Q4

REPORT INFORMATION
  Report Type: Report from Study
  Country: BE (occurrence: BE)
  Receive Date: 20220526
  Receipt Date: 20221103
  Transmission Date: 20230113
  Serious: Yes (Death, Hospitalization, Other)
  Sender: FDA-Public Use
  Company Number: BE-ABBVIE-22K-013-4409301-00

PATIENT
  Sex: Male
  Weight: 80 kg

DRUGS (19)
  1. CARBIDOPA\LEVODOPA [Suspect]
     Active Substance: CARBIDOPA\LEVODOPA
     Indication: Parkinson^s disease
     Route: 050
     Dates: start: 20160118
  2. CARBIDOPA\LEVODOPA [Suspect]
     Active Substance: CARBIDOPA\LEVODOPA
     Dosage: MD 3.0 ML; CD 2.9 ML/HR DURING 16 HOURS; ED 1.5 ML; CND 2.2 ML/HR
     Route: 050
     Dates: start: 20220524, end: 20220708
  3. CARBIDOPA\LEVODOPA [Suspect]
     Active Substance: CARBIDOPA\LEVODOPA
     Dosage: MD 3.0 ML; CD 2.4 ML/HR DURING 24 HOURS; ED 1.5 ML; CND 2.4 ML/HR
     Route: 050
     Dates: start: 20220708, end: 20220720
  4. CARBIDOPA\LEVODOPA [Suspect]
     Active Substance: CARBIDOPA\LEVODOPA
     Dosage: MD 3.0 ML; CD 3.0 ML/HR DURING 24 HOURS; ED 2.0 ML; CND 2.4 ML/ HR
     Route: 050
     Dates: start: 20220720, end: 20220802
  5. CARBIDOPA\LEVODOPA [Suspect]
     Active Substance: CARBIDOPA\LEVODOPA
     Dosage: MD 3.0 ML; CD 2.9 ML/HR DURING 24 HOURS; ED 1.5 ML; CND 2.2 ML/HR
     Route: 050
     Dates: start: 20220802, end: 20220929
  6. CARBIDOPA\LEVODOPA [Suspect]
     Active Substance: CARBIDOPA\LEVODOPA
     Dosage: MD 3.0 ML, CD 2.9 ML/HR DURING 16 HOURS; ED 1.5 ML; CND 2.3 ML/HR
     Route: 050
     Dates: start: 20220929, end: 20221028
  7. ACTRAPID [Concomitant]
     Active Substance: INSULIN HUMAN
     Indication: Product used for unknown indication
     Dosage: IN THE MORNING
  8. ACTRAPID [Concomitant]
     Active Substance: INSULIN HUMAN
     Indication: Product used for unknown indication
     Dosage: IN THE AFTERNOON
  9. ACTRAPID [Concomitant]
     Active Substance: INSULIN HUMAN
     Indication: Product used for unknown indication
     Dosage: AT 20.00
  10. AZILECT [Concomitant]
     Active Substance: RASAGILINE MESYLATE
     Indication: Product used for unknown indication
     Dosage: IN THE MORNING
  11. COVERAM [Concomitant]
     Active Substance: AMLODIPINE\PERINDOPRIL
     Indication: Product used for unknown indication
     Dosage: AT 8.00 HOUR?FORM STRENGTH: 10 UNKNOWN UNIT
  12. LANTUS [Concomitant]
     Active Substance: INSULIN GLARGINE
     Indication: Product used for unknown indication
     Dosage: BEFORE GOING TO BED
  13. MODURETIC 5-50 [Concomitant]
     Active Substance: AMILORIDE HYDROCHLORIDE\HYDROCHLOROTHIAZIDE
     Indication: Product used for unknown indication
     Dosage: FORM STRENGTH: 5/12.5 UNKNOWN
  14. BENSERAZIDE\LEVODOPA [Concomitant]
     Active Substance: BENSERAZIDE\LEVODOPA
     Indication: Product used for unknown indication
     Dosage: WHEN GOING TO SLEEP?FORM STRENGTH: 125 UNKNOWN UNIT
  15. REQUIP [Concomitant]
     Active Substance: ROPINIROLE HYDROCHLORIDE
     Indication: Product used for unknown indication
     Dosage: IN THE EVENING?FORM STRENGTH: 2MG
  16. REQUIP [Concomitant]
     Active Substance: ROPINIROLE HYDROCHLORIDE
     Indication: Product used for unknown indication
     Dosage: IN THE MORNING?FORM STRENGTH: 4MG
  17. STALEVO [Concomitant]
     Active Substance: CARBIDOPA\ENTACAPONE\LEVODOPA
     Indication: Product used for unknown indication
     Dosage: WHEN NEEDED IN THE EVENING?FORM STRENGTH: 100 UNKNOWN UNIT
  18. STALEVO [Concomitant]
     Active Substance: CARBIDOPA\ENTACAPONE\LEVODOPA
     Indication: Product used for unknown indication
     Dosage: FORM STRENGTH: 100 UNKNOWN UNIT
  19. ATORVASTATIN [Concomitant]
     Active Substance: ATORVASTATIN
     Indication: Product used for unknown indication
     Dosage: FORM STRENGTH: 40 UNKNOWN UNIT

REACTIONS (3)
  - Lung neoplasm malignant [Fatal]
  - Dysphagia [Unknown]
  - Therapeutic product effect incomplete [Unknown]
